FAERS Safety Report 9153588 (Version 1)
Quarter: 2013Q1

REPORT INFORMATION
  Report Type: Report from Study
  Country: MX (occurrence: MX)
  Receive Date: 20130311
  Receipt Date: 20130311
  Transmission Date: 20140127
  Serious: Yes (Hospitalization)
  Sender: FDA-Public Use
  Company Number: PHHO2006MX13560

PATIENT
  Age: 30 Year
  Sex: Male

DRUGS (4)
  1. CYCLOSPORIN [Suspect]
     Indication: RENAL TRANSPLANT
     Route: 048
     Dates: start: 20060727
  2. MYCOPHENOLATE MOFETIL [Concomitant]
     Indication: RENAL TRANSPLANT
     Dates: start: 20060727
  3. SULFAMETHOXAZOLE W/TRIMETHOPRIM [Concomitant]
  4. VALGANCICLOVIR [Concomitant]

REACTIONS (1)
  - Hypertension [Recovered/Resolved]
